FAERS Safety Report 21046472 (Version 4)
Quarter: 2022Q4

REPORT INFORMATION
  Report Type: Report from Study
  Country: CA (occurrence: CA)
  Receive Date: 20220706
  Receipt Date: 20221014
  Transmission Date: 20230113
  Serious: Yes (Other)
  Sender: FDA-Public Use
  Company Number: CA-ABBVIE-22K-028-4456826-00

PATIENT
  Age: 51 Year
  Sex: Male

DRUGS (3)
  1. HUMIRA [Suspect]
     Active Substance: ADALIMUMAB
     Indication: Crohn^s disease
     Route: 058
     Dates: start: 20201130
  2. HUMIRA [Suspect]
     Active Substance: ADALIMUMAB
     Route: 058
  3. HUMIRA [Suspect]
     Active Substance: ADALIMUMAB
     Route: 058

REACTIONS (20)
  - Stomal hernia [Unknown]
  - Ileostomy [Not Recovered/Not Resolved]
  - Anal fistula [Not Recovered/Not Resolved]
  - Fatigue [Unknown]
  - Stress [Not Recovered/Not Resolved]
  - Fistula discharge [Not Recovered/Not Resolved]
  - Therapeutic response shortened [Unknown]
  - Abdominal pain upper [Not Recovered/Not Resolved]
  - Injection site reaction [Unknown]
  - Injection site haemorrhage [Unknown]
  - Urticaria [Unknown]
  - Gait disturbance [Unknown]
  - Arthralgia [Unknown]
  - Pain [Unknown]
  - Chapped lips [Unknown]
  - Abscess oral [Unknown]
  - Pruritus [Unknown]
  - Dry skin [Unknown]
  - Pruritus [Unknown]
  - Adverse food reaction [Unknown]

NARRATIVE: CASE EVENT DATE: 20211101
